FAERS Safety Report 21892470 (Version 8)
Quarter: 2023Q2

REPORT INFORMATION
  Report Type: Report from Study
  Country: CA (occurrence: CA)
  Receive Date: 20230120
  Receipt Date: 20230630
  Transmission Date: 20230722
  Serious: Yes (Hospitalization, Other)
  Sender: FDA-Public Use
  Company Number: CA-KOREA IPSEN Pharma-2022-33957

PATIENT
  Age: 86 Year
  Sex: Male

DRUGS (23)
  1. LANREOTIDE ACETATE [Suspect]
     Active Substance: LANREOTIDE ACETATE
     Indication: Carcinoid syndrome
     Dosage: 120 MG, EVERY 4 WEEKS
     Route: 058
     Dates: start: 20220527
  2. LANREOTIDE ACETATE [Suspect]
     Active Substance: LANREOTIDE ACETATE
     Dosage: 120 MG, EVERY 4 WEEKS
     Route: 058
     Dates: start: 20220527
  3. ACETAMINOPHEN [Concomitant]
     Active Substance: ACETAMINOPHEN
  4. FUROSEMIDE [Concomitant]
     Active Substance: FUROSEMIDE
  5. FERROUS GLUCONATE [Concomitant]
     Active Substance: FERROUS GLUCONATE
  6. RISEDRONATE SODIUM [Concomitant]
     Active Substance: RISEDRONATE SODIUM
  7. CALCITRIOL [Concomitant]
     Active Substance: CALCITRIOL
  8. HYDROMORPHONE HYDROCHLORIDE [Concomitant]
     Active Substance: HYDROMORPHONE HYDROCHLORIDE
  9. LANTUS SLOTAR [Concomitant]
  10. ALLOPURINOL [Concomitant]
     Active Substance: ALLOPURINOL
  11. AMLODIPINE [Concomitant]
     Active Substance: AMLODIPINE BESYLATE
  12. PANTOPRAZOLE [Concomitant]
     Active Substance: PANTOPRAZOLE
  13. PREGABALIN [Concomitant]
     Active Substance: PREGABALIN
     Dosage: 75 MG
  14. ROSUVASTATIN [Concomitant]
     Active Substance: ROSUVASTATIN
  15. CANDESARTAN [Concomitant]
     Active Substance: CANDESARTAN
  16. TAMUSOLIN [Concomitant]
  17. LINAGLIPTIN [Concomitant]
     Active Substance: LINAGLIPTIN
  18. TUMS [Concomitant]
     Active Substance: CALCIUM CARBONATE
  19. VITAMIN D3 [Concomitant]
     Active Substance: CHOLECALCIFEROL
  20. LORATADINE [Concomitant]
     Active Substance: LORATADINE
     Dosage: PRN
  21. BETADERM [Concomitant]
     Active Substance: BETAMETHASONE VALERATE
     Dosage: PRN
  22. VOLTAREN [Concomitant]
     Active Substance: DICLOFENAC SODIUM
  23. UREA [Concomitant]
     Active Substance: UREA
     Dosage: 10 PERCENT CREAM

REACTIONS (18)
  - Asthenia [Not Recovered/Not Resolved]
  - Palliative care [Not Recovered/Not Resolved]
  - Jugular vein thrombosis [Unknown]
  - Fall [Unknown]
  - Femur fracture [Not Recovered/Not Resolved]
  - Weight decreased [Not Recovered/Not Resolved]
  - Fall [Unknown]
  - Pain [Unknown]
  - Back pain [Recovering/Resolving]
  - Peripheral swelling [Not Recovered/Not Resolved]
  - Hypertension [Not Recovered/Not Resolved]
  - Weight decreased [Not Recovered/Not Resolved]
  - Fatigue [Not Recovered/Not Resolved]
  - Somnolence [Not Recovered/Not Resolved]
  - Off label use [Unknown]
  - Fall [Unknown]
  - Contusion [Recovered/Resolved]
  - Skin laceration [Recovered/Resolved]

NARRATIVE: CASE EVENT DATE: 20221001
